FAERS Safety Report 7109362-8 (Version None)
Quarter: 2010Q4

REPORT INFORMATION
  Report Type: 
  Country: None (occurrence: None)
  Receive Date: 20101118
  Receipt Date: 20101109
  Transmission Date: 20110411
  Serious: Yes (Hospitalization)
  Sender: FDA-Public Use
  Company Number: US-BIOGENIDEC-2010BI033436

PATIENT
  Age: 71 Year
  Sex: Female

DRUGS (3)
  1. AVONEX [Suspect]
     Indication: MULTIPLE SCLEROSIS
     Route: 030
     Dates: start: 19960901
  2. LEVAQUIN [Concomitant]
  3. UNKNOWN ANTIBIOTIC [Concomitant]
     Dates: start: 20100901

REACTIONS (3)
  - AGITATION [None]
  - CONFUSIONAL STATE [None]
  - CYSTITIS [None]
